FAERS Safety Report 6188974-2 (Version None)
Quarter: 2009Q2

REPORT INFORMATION
  Report Type: 
  Country: None (occurrence: None)
  Receive Date: 20090513
  Receipt Date: 20090430
  Transmission Date: 20091009
  Serious: Yes (Death)
  Sender: FDA-Public Use
  Company Number: IR-PFIZER INC-2009207599

PATIENT
  Age: 38 Year

DRUGS (3)
  1. PREDNISOLONE STEAGLATE AND PREDNISOLONE [Suspect]
     Indication: BRONCHIAL HYPERREACTIVITY
     Dosage: 15 MG, UNK
  2. CO-AMOXICLAV [Concomitant]
  3. ERYTHROMYCIN [Suspect]

REACTIONS (1)
  - PNEUMOCYSTIS JIROVECI PNEUMONIA [None]
